FAERS Safety Report 18134378 (Version 1)
Quarter: 2020Q3

REPORT INFORMATION
  Report Type: Spontaneous
  Country: US (occurrence: US)
  Receive Date: 20200807
  Receipt Date: 20200807
  Transmission Date: 20201103
  Serious: No
  Sender: FDA-Public Use
  Company Number: None

PATIENT
  Age: 49 Year
  Sex: Female

DRUGS (20)
  1. FLUTICASONE. [Concomitant]
     Active Substance: FLUTICASONE
  2. VITAMIN D [Concomitant]
     Active Substance: VITAMIN D NOS
  3. GILENYA [Concomitant]
     Active Substance: FINGOLIMOD HYDROCHLORIDE
  4. LIDOCAINE. [Concomitant]
     Active Substance: LIDOCAINE
  5. MEDROL [Concomitant]
     Active Substance: METHYLPREDNISOLONE
  6. POTASSIUM [Concomitant]
     Active Substance: POTASSIUM
  7. FUROSEMIDE. [Concomitant]
     Active Substance: FUROSEMIDE
  8. HYDROCORTISONE. [Concomitant]
     Active Substance: HYDROCORTISONE
  9. DULOXETINE. [Concomitant]
     Active Substance: DULOXETINE
  10. TECFIDERA [Suspect]
     Active Substance: DIMETHYL FUMARATE
     Indication: MULTIPLE SCLEROSIS
     Route: 048
     Dates: start: 20190828
  11. BUTALBITAL [Concomitant]
     Active Substance: BUTALBITAL
  12. COMPAZINE [Concomitant]
     Active Substance: PROCHLORPERAZINE MALEATE
  13. DOCUSATE [Concomitant]
     Active Substance: DOCUSATE
  14. PERCOCET [Concomitant]
     Active Substance: ACETAMINOPHEN\OXYCODONE HYDROCHLORIDE
  15. VENTOLINE [Concomitant]
     Active Substance: ALBUTEROL
  16. BACLFOEN [Concomitant]
     Active Substance: BACLOFEN
  17. IBUPROFEN. [Concomitant]
     Active Substance: IBUPROFEN
  18. SIMVASTATIN. [Concomitant]
     Active Substance: SIMVASTATIN
  19. TRIAMICINOLONE [Concomitant]
  20. TRIAMTERENT [Concomitant]

REACTIONS (2)
  - Fatigue [None]
  - Radiotherapy [None]
